FAERS Safety Report 15195759 (Version 1)
Quarter: 2018Q3

REPORT INFORMATION
  Report Type: Spontaneous
  Country: FR (occurrence: FR)
  Receive Date: 20180725
  Receipt Date: 20180725
  Transmission Date: 20181010
  Serious: Yes (Hospitalization)
  Sender: FDA-Public Use
  Company Number: FR-PFIZER INC-2018292607

PATIENT
  Age: 3 Year
  Sex: Male
  Weight: 29 kg

DRUGS (2)
  1. VINCRISTINE HOSPIRA [Suspect]
     Active Substance: VINCRISTINE
     Indication: LEUKAEMIA
     Dosage: 1.5 MG, UNK
     Route: 042
     Dates: start: 20140817, end: 20141217
  2. MABTHERA [Suspect]
     Active Substance: RITUXIMAB
     Indication: LEUKAEMIA
     Dosage: 290 MG, UNK
     Route: 042
     Dates: start: 20140822, end: 20141023

REACTIONS (1)
  - Corneal cyst [Recovering/Resolving]

NARRATIVE: CASE EVENT DATE: 201502
